FAERS Safety Report 22987084 (Version 2)
Quarter: 2024Q4

REPORT INFORMATION
  Report Type: Spontaneous
  Country: US (occurrence: US)
  Receive Date: 20230926
  Receipt Date: 20241112
  Transmission Date: 20250114
  Serious: No
  Sender: SANOFI AVENTIS
  Company Number: US-SA-SAC20230922000176

PATIENT
  Age: 41 Year
  Sex: Female
  Weight: 90.91 kg

DRUGS (1)
  1. DUPIXENT [Suspect]
     Active Substance: DUPILUMAB
     Indication: Dermatitis atopic
     Dosage: 300 MG, QOW
     Route: 058

REACTIONS (6)
  - Discomfort [Unknown]
  - Eye discharge [Unknown]
  - Eyelid exfoliation [Unknown]
  - Weight increased [Unknown]
  - Eye pruritus [Unknown]
  - Dermatitis atopic [Unknown]
